FAERS Safety Report 6930716-4 (Version None)
Quarter: 2010Q3

REPORT INFORMATION
  Report Type: 
  Country: None (occurrence: None)
  Receive Date: 20100818
  Receipt Date: 20100813
  Transmission Date: 20110219
  Serious: Yes (Death, Hospitalization)
  Sender: FDA-Public Use
  Company Number: NO-CELGENEUS-122-21880-10062803

PATIENT
  Sex: Female
  Weight: 100 kg

DRUGS (6)
  1. REVLIMID [Suspect]
     Indication: MULTIPLE MYELOMA
     Route: 048
     Dates: start: 20100513, end: 20100616
  2. DEXAMETHASONE [Suspect]
     Indication: MULTIPLE MYELOMA
     Route: 048
     Dates: start: 20100513, end: 20100616
  3. OXYCODONE [Concomitant]
     Route: 048
  4. SPIRONOLACTONE [Concomitant]
     Indication: DIURETIC THERAPY
     Route: 048
  5. BUDESONIDE [Concomitant]
     Dosage: 320MCG/9
     Route: 055
  6. ALBUTEROL SULFATE AUTOHALER [Concomitant]
     Route: 055

REACTIONS (3)
  - AGRANULOCYTOSIS [None]
  - PNEUMONIA [None]
  - SEPTIC SHOCK [None]
